FAERS Safety Report 9280236 (Version 4)
Quarter: 2013Q3

REPORT INFORMATION
  Report Type: Report from Study
  Country: AU (occurrence: AU)
  Receive Date: 20130509
  Receipt Date: 20130717
  Transmission Date: 20140515
  Serious: Yes (Death, Other)
  Sender: FDA-Public Use
  Company Number: PHHY2013AU043982

PATIENT
  Age: 37 Year
  Sex: Male
  Weight: 113.8 kg

DRUGS (5)
  1. CLOZARIL [Suspect]
     Indication: SCHIZOPHRENIA
     Dosage: 250 MG, AT NIGHT
     Route: 048
     Dates: start: 20100826
  2. LOSAC [Concomitant]
     Indication: GASTROOESOPHAGEAL REFLUX DISEASE
     Dosage: 40 MG, QD
     Route: 048
  3. ROSUVASTATIN [Concomitant]
     Indication: HYPERCHOLESTEROLAEMIA
     Dosage: 40 MG, MANE
     Route: 048
  4. METOPROLOL [Concomitant]
     Indication: HYPERTENSION
     Dosage: 50 MG, BID
     Route: 048
  5. AMISULPRIDE [Concomitant]
     Indication: SCHIZOPHRENIA
     Dosage: 200 MG, MANE
     Route: 048

REACTIONS (16)
  - Cardiovascular disorder [Fatal]
  - Arteriosclerosis coronary artery [Fatal]
  - Dyspnoea [Fatal]
  - Chest pain [Fatal]
  - Overweight [Fatal]
  - Fall [Unknown]
  - Heart rate increased [Unknown]
  - Electrocardiogram abnormal [Unknown]
  - Gastritis [Unknown]
  - Hypophagia [Unknown]
  - Mood altered [Unknown]
  - Liver function test abnormal [Unknown]
  - Ileal stenosis [Unknown]
  - White blood cell count increased [Unknown]
  - Neutrophil count increased [Unknown]
  - Malaise [Unknown]
